FAERS Safety Report 16877181 (Version 2)
Quarter: 2019Q4

REPORT INFORMATION
  Report Type: Spontaneous
  Country: CZ (occurrence: CZ)
  Receive Date: 20191002
  Receipt Date: 20191202
  Transmission Date: 20200122
  Serious: Yes (Death)
  Sender: FDA-Public Use
  Company Number: CZ-ROCHE-2419759

PATIENT
  Sex: Male

DRUGS (1)
  1. ALECENSA [Suspect]
     Active Substance: ALECTINIB HYDROCHLORIDE
     Indication: NON-SMALL CELL LUNG CANCER
     Route: 048
     Dates: start: 20181221

REACTIONS (1)
  - Pulmonary embolism [Fatal]
